FAERS Safety Report 25147837 (Version 1)
Quarter: 2025Q2

REPORT INFORMATION
  Report Type: Spontaneous
  Country: US (occurrence: US)
  Receive Date: 20250402
  Receipt Date: 20250402
  Transmission Date: 20250717
  Serious: No
  Sender: BRISTOL MYERS SQUIBB
  Company Number: US-BRISTOL-MYERS SQUIBB COMPANY-2025-048228

PATIENT
  Age: 28 Year
  Sex: Male

DRUGS (1)
  1. COBENFY [Suspect]
     Active Substance: TROSPIUM CHLORIDE\XANOMELINE
     Indication: Schizophrenia
     Dosage: DOSE AND STRENGTH: : 125 MG/30 MG
     Route: 048

REACTIONS (2)
  - Nausea [Unknown]
  - Dyspepsia [Not Recovered/Not Resolved]
